FAERS Safety Report 5777949-0 (Version None)
Quarter: 2008Q2

REPORT INFORMATION
  Report Type: 
  Country: None (occurrence: None)
  Receive Date: 20080618
  Receipt Date: 20080618
  Transmission Date: 20081010
  Serious: Yes (Hospitalization)
  Sender: FDA-Public Use
  Company Number: None

PATIENT
  Age: 70 Year
  Sex: Female
  Weight: 71 kg

DRUGS (4)
  1. BEVACIZUMAB [Suspect]
     Indication: DISEASE RECURRENCE
     Dosage: 10MG/KG DAY 1+15 Q 28
     Dates: start: 20080310, end: 20080519
  2. BEVACIZUMAB [Suspect]
     Indication: NEOPLASM MALIGNANT
     Dosage: 10MG/KG DAY 1+15 Q 28
     Dates: start: 20080310, end: 20080519
  3. TOPOTECAN [Suspect]
     Indication: DISEASE RECURRENCE
     Dosage: 4MG/M2 DAY 1,8 + 15 Q 28
     Dates: start: 20080310, end: 20080519
  4. TOPOTECAN [Suspect]
     Indication: NEOPLASM MALIGNANT
     Dosage: 4MG/M2 DAY 1,8 + 15 Q 28
     Dates: start: 20080310, end: 20080519

REACTIONS (6)
  - ANAEMIA [None]
  - ATELECTASIS [None]
  - BLOOD MAGNESIUM DECREASED [None]
  - BRONCHITIS [None]
  - LOSS OF CONSCIOUSNESS [None]
  - WHITE BLOOD CELL COUNT INCREASED [None]
